FAERS Safety Report 16642289 (Version 1)
Quarter: 2019Q3

REPORT INFORMATION
  Report Type: Spontaneous
  Country: US (occurrence: US)
  Receive Date: 20190614
  Receipt Date: 20190614
  Transmission Date: 20191004
  Serious: Yes (Other)
  Sender: FDA-Public Use
  Company Number: None

PATIENT
  Age: 18 Year
  Sex: Female
  Weight: 45.36 kg

DRUGS (2)
  1. DESVENLAFAXINE. [Suspect]
     Active Substance: DESVENLAFAXINE
     Indication: MAJOR DEPRESSION
     Route: 048
  2. DESVENLAFAXINE. [Suspect]
     Active Substance: DESVENLAFAXINE
     Dates: start: 2019

REACTIONS (2)
  - Product substitution issue [None]
  - Disease recurrence [None]

NARRATIVE: CASE EVENT DATE: 20190508
